FAERS Safety Report 5626383-2 (Version None)
Quarter: 2008Q1

REPORT INFORMATION
  Report Type: 
  Country: None (occurrence: None)
  Receive Date: 20080211
  Receipt Date: 20080130
  Transmission Date: 20080703
  Serious: Yes (Other)
  Sender: FDA-Public Use
  Company Number: 2008VX000099

PATIENT
  Age: 65 Year
  Sex: Female
  Weight: 79.3795 kg

DRUGS (4)
  1. CESAMET [Suspect]
     Indication: MIGRAINE
     Dosage: 1.5 MG;HS;PO;  0.5 MG;HS;PO
     Route: 048
     Dates: start: 20060101, end: 20071201
  2. CESAMET [Suspect]
     Indication: MIGRAINE
     Dosage: 1.5 MG;HS;PO;  0.5 MG;HS;PO
     Route: 048
     Dates: start: 20071201
  3. NEXIUM [Concomitant]
  4. DICETEL [Concomitant]

REACTIONS (11)
  - AMNESIA [None]
  - ATAXIA [None]
  - DISTURBANCE IN ATTENTION [None]
  - DRY MOUTH [None]
  - FATIGUE [None]
  - HYPOAESTHESIA [None]
  - IMMUNOGLOBULINS DECREASED [None]
  - LOSS OF CONSCIOUSNESS [None]
  - ORTHOSTATIC HYPOTENSION [None]
  - SOMNOLENCE [None]
  - VERTIGO [None]
